FAERS Safety Report 7335467-2 (Version None)
Quarter: 2011Q1

REPORT INFORMATION
  Report Type: 
  Country: None (occurrence: None)
  Receive Date: 20110302
  Receipt Date: 20110302
  Transmission Date: 20110831
  Serious: Yes (Hospitalization)
  Sender: FDA-Public Use
  Company Number: None

PATIENT
  Age: 62 Year
  Sex: Male
  Weight: 58.9676 kg

DRUGS (1)
  1. SPIRONOLACTONE [Suspect]
     Indication: ALCOHOLIC LIVER DISEASE
     Dosage: 50 MG EVERY DAY PO
     Route: 048
     Dates: start: 20071211, end: 20110103

REACTIONS (1)
  - HYPERKALAEMIA [None]
